FAERS Safety Report 11134880 (Version 4)
Quarter: 2017Q2

REPORT INFORMATION
  Report Type: Spontaneous
  Country: NL (occurrence: NL)
  Receive Date: 20150525
  Receipt Date: 20170613
  Transmission Date: 20170829
  Serious: Yes (Hospitalization, Other)
  Sender: FDA-Public Use
  Company Number: NL-SUN PHARMACEUTICAL INDUSTRIES LTD-2015R1-97351

PATIENT
  Age: 54 Year
  Sex: Female

DRUGS (10)
  1. VALPROIC ACID. [Interacting]
     Active Substance: VALPROIC ACID
     Indication: SEIZURE
     Dosage: 1000 MG 2DD
     Route: 048
  2. FLUCLOXACILLIN [Concomitant]
     Active Substance: FLUCLOXACILLIN
     Indication: DEVICE RELATED INFECTION
     Dosage: UNK
     Route: 065
  3. CLONAZEPAM. [Suspect]
     Active Substance: CLONAZEPAM
     Indication: EPILEPSY
     Dosage: 1 MG 2 DD
     Route: 042
  4. RIFAMPICIN [Interacting]
     Active Substance: RIFAMPIN
     Indication: DEVICE RELATED INFECTION
     Dosage: 450 MG 2 DD
     Route: 065
  5. CARBAMAZEPINE. [Interacting]
     Active Substance: CARBAMAZEPINE
     Dosage: 300 MG 3DD
     Route: 048
  6. CLONAZEPAM. [Suspect]
     Active Substance: CLONAZEPAM
     Indication: EPILEPSY
     Dosage: 0.5 MG 2DD
     Route: 048
  7. CARBAMAZEPINE. [Interacting]
     Active Substance: CARBAMAZEPINE
     Indication: SEIZURE
     Dosage: 200 MG 2DD
     Route: 048
  8. CARBAMAZEPINE. [Interacting]
     Active Substance: CARBAMAZEPINE
     Dosage: 400 MG 2DD
     Route: 048
  9. VALPROIC ACID. [Interacting]
     Active Substance: VALPROIC ACID
     Dosage: 1500 MG 2DD
     Route: 048
  10. PHENYTOIN. [Suspect]
     Active Substance: PHENYTOIN
     Indication: EPILEPSY
     Dosage: 1250 MG 1 DD
     Route: 042

REACTIONS (2)
  - Drug interaction [Unknown]
  - Drug ineffective [Unknown]
